FAERS Safety Report 7771961-8 (Version None)
Quarter: 2011Q3

REPORT INFORMATION
  Report Type: 
  Country: None (occurrence: None)
  Receive Date: 20110922
  Receipt Date: 20100901
  Transmission Date: 20111222
  Serious: No
  Sender: FDA-Public Use
  Company Number: US-ASTRAZENECA-2009UW16229

PATIENT
  Age: 64 Year
  Sex: Female
  Weight: 90.7 kg

DRUGS (6)
  1. PROTONIX [Concomitant]
  2. CLOZAPINE [Concomitant]
  3. SEROQUEL [Suspect]
     Indication: DEPRESSION
     Route: 048
     Dates: start: 20020101, end: 20080101
  4. SEROQUEL [Suspect]
     Dosage: 25 TO 300 MG
     Route: 048
     Dates: start: 20051027
  5. HYDROCODONE [Concomitant]
     Dosage: 5 / 500
     Dates: start: 20060515
  6. SEROQUEL [Suspect]
     Route: 048
     Dates: start: 20040601, end: 20090401

REACTIONS (3)
  - OBESITY [None]
  - STERNAL FRACTURE [None]
  - TYPE 2 DIABETES MELLITUS [None]
